FAERS Safety Report 7557239-6 (Version None)
Quarter: 2011Q2

REPORT INFORMATION
  Report Type: 
  Country: None (occurrence: None)
  Receive Date: 20110620
  Receipt Date: 20110608
  Transmission Date: 20111010
  Serious: Yes (Death, Life-Threatening, Disabling, Other)
  Sender: FDA-Public Use
  Company Number: JP-ROCHE-773651

PATIENT
  Sex: Male
  Weight: 60 kg

DRUGS (8)
  1. AVASTIN [Suspect]
     Route: 041
     Dates: start: 20110316, end: 20110331
  2. OXALIPLATIN [Suspect]
     Indication: LARGE INTESTINE CARCINOMA
     Route: 041
     Dates: start: 20100707, end: 20101027
  3. IRINOTECAN HCL [Concomitant]
     Route: 041
     Dates: start: 20110316
  4. TS-1 [Concomitant]
     Route: 048
     Dates: start: 20110316
  5. VOLTAREN [Concomitant]
     Dosage: DOSE FORM: SUPPOSITORIAE RECTALE.
     Route: 054
     Dates: start: 20101106
  6. AVASTIN [Suspect]
     Indication: LARGE INTESTINE CARCINOMA
     Route: 041
     Dates: start: 20100727, end: 20101027
  7. XELODA [Suspect]
     Dosage: NOTE: IT IS ONE ADMINISTERING WEEKLY HOLIDAY MEDICINE FOR TWO WEEKS.
     Route: 048
     Dates: start: 20101001, end: 20110302
  8. XELODA [Suspect]
     Indication: LARGE INTESTINE CARCINOMA
     Dosage: NOTE: IT IS ONE ADMINISTERING WEEKLY HOLIDAY MEDICINE FOR TWO WEEKS.
     Route: 048
     Dates: start: 20100707, end: 20101027

REACTIONS (4)
  - MULTI-ORGAN FAILURE [None]
  - PERITONITIS [None]
  - NEUTROPHIL COUNT DECREASED [None]
  - POSTOPERATIVE WOUND COMPLICATION [None]
